FAERS Safety Report 22206798 (Version 1)
Quarter: 2023Q2

REPORT INFORMATION
  Report Type: Spontaneous
  Country: US (occurrence: None)
  Receive Date: 20230412
  Receipt Date: 20230412
  Transmission Date: 20230721
  Serious: Yes (Hospitalization)
  Sender: FDA-Public Use
  Company Number: None

PATIENT
  Age: 81 Year
  Sex: Female
  Weight: 44.45 kg

DRUGS (22)
  1. IBRANCE [Suspect]
     Active Substance: PALBOCICLIB
     Indication: Breast cancer female
     Dosage: FREQUENCY : DAILY;?
     Route: 048
  2. APPLE CIDER VINEGAR [Concomitant]
  3. BIOTIN [Concomitant]
     Active Substance: BIOTIN
  4. CALCIUM-MAGNESIUM-ZINC [Concomitant]
  5. CELEBREX [Concomitant]
  6. CRANBERRY [Concomitant]
  7. DICLOFENAC [Concomitant]
     Active Substance: DICLOFENAC
  8. SELENIUM [Concomitant]
     Active Substance: SELENIUM
  9. FENTANYL [Concomitant]
  10. GABAPENTIN [Concomitant]
  11. HYDROCHLOROTHIAZIDE [Concomitant]
     Active Substance: HYDROCHLOROTHIAZIDE
  12. HYDROMORPHONE [Concomitant]
  13. LETROZOLE [Concomitant]
     Active Substance: LETROZOLE
  14. NAPROXEN [Concomitant]
     Active Substance: NAPROXEN
  15. PROMETHAZINE [Concomitant]
  16. SUPER GREENS [Concomitant]
  17. TRIAMTERENE [Concomitant]
  18. VERAPAMIL [Concomitant]
     Active Substance: VERAPAMIL HYDROCHLORIDE
  19. VITAMIN C [Concomitant]
  20. MENAQUINONE 6 [Concomitant]
     Active Substance: MENAQUINONE 6
  21. XGEVA [Concomitant]
  22. ZOCOR [Concomitant]
     Active Substance: SIMVASTATIN

REACTIONS (2)
  - Urinary tract infection [None]
  - Pneumonia [None]
